FAERS Safety Report 6077503-X (Version None)
Quarter: 2009Q1

REPORT INFORMATION
  Report Type: 
  Country: None (occurrence: None)
  Receive Date: 20090213
  Receipt Date: 20090210
  Transmission Date: 20090719
  Serious: Yes (Death, Hospitalization)
  Sender: FDA-Public Use
  Company Number: BE-AVENTIS-200911343GDDC

PATIENT
  Sex: Male
  Weight: 73 kg

DRUGS (2)
  1. TAXOTERE [Suspect]
     Indication: NON-SMALL CELL LUNG CANCER STAGE IIIA
     Route: 042
     Dates: start: 20071220, end: 20071220
  2. CISPLATIN [Suspect]
     Indication: NON-SMALL CELL LUNG CANCER STAGE IIIA
     Route: 042
     Dates: start: 20071220, end: 20071220

REACTIONS (4)
  - MYOCARDIAL ISCHAEMIA [None]
  - PNEUMONIA [None]
  - PULMONARY OEDEMA [None]
  - RESPIRATORY FAILURE [None]
